FAERS Safety Report 4287069-2 (Version None)
Quarter: 2004Q1

REPORT INFORMATION
  Report Type: 
  Country: None (occurrence: None)
  Receive Date: 20040125
  Receipt Date: 20030516
  Transmission Date: 20041129
  Serious: Yes (Hospitalization)
  Sender: FDA-Public Use
  Company Number: None

PATIENT
  Sex: Male

DRUGS (1)
  1. DELFLEX W/ DEXTROSE 4.25% [Suspect]
     Indication: RENAL FAILURE CHRONIC
     Dosage: INTRAPERITONEAL, DAILY
     Route: 033

REACTIONS (1)
  - PSEUDOMONAS INFECTION [None]
